FAERS Safety Report 5672012-1 (Version None)
Quarter: 2008Q1

REPORT INFORMATION
  Report Type: 
  Country: None (occurrence: None)
  Receive Date: 20080314
  Receipt Date: 20080227
  Transmission Date: 20080703
  Serious: Yes (Hospitalization)
  Sender: FDA-Public Use
  Company Number: 2008JP001065

PATIENT
  Age: 40 Year
  Sex: Male

DRUGS (3)
  1. CEFTIZOXIME (UNSPECIFIED)(CEFTIZOXIME) INJECTION [Suspect]
     Indication: INFECTION PROPHYLAXIS
     Dosage: 3 DF, D, IV NOS
     Route: 042
     Dates: start: 20080113, end: 20080124
  2. CLEXANE (ENOXAPARIN SODIUM) [Concomitant]
  3. DEFLAMON (METRONIDAZOLE) [Concomitant]

REACTIONS (3)
  - CANDIDA SEPSIS [None]
  - HYPERPYREXIA [None]
  - SEPTIC SHOCK [None]
